FAERS Safety Report 22228675 (Version 5)
Quarter: 2025Q4

REPORT INFORMATION
  Report Type: Spontaneous
  Country: EU (occurrence: EU)
  Receive Date: 20230419
  Receipt Date: 20251023
  Transmission Date: 20260118
  Serious: Yes (Life-Threatening, Hospitalization, Other)
  Sender: TEVA
  Company Number: None

PATIENT
  Age: 55 Year
  Sex: Male

DRUGS (42)
  1. VALACYCLOVIR HYDROCHLORIDE [Suspect]
     Active Substance: VALACYCLOVIR HYDROCHLORIDE
     Indication: Bacterial infection
     Dosage: 1,000 MG, QD, 500 MG MORNING AND EVENING?500 MG, BID
     Route: 048
     Dates: start: 20230106
  2. VALACYCLOVIR HYDROCHLORIDE [Suspect]
     Active Substance: VALACYCLOVIR HYDROCHLORIDE
     Indication: Bacterial infection
     Dosage: 500MG MORNING AND EVENING
     Route: 048
     Dates: start: 20230106
  3. ALPRAZOLAM [Suspect]
     Active Substance: ALPRAZOLAM
     Indication: Anxiety
     Route: 048
     Dates: start: 20230106, end: 20230209
  4. VINCRISTINE [Suspect]
     Active Substance: VINCRISTINE
     Indication: Diffuse large B-cell lymphoma
     Dosage: DOSE DESCRIPTION: 1 TREATMENT, 1 COURSE; VINCRISTINE SULFATE
     Route: 065
     Dates: start: 20221227
  5. NALOXEGOL OXALATE [Suspect]
     Active Substance: NALOXEGOL OXALATE
     Indication: Constipation
     Dosage: TIME INTERVAL: AS NECESSARY: 25 MILLIGRAM, PRN (IF NECESSARY)
     Route: 048
     Dates: start: 20230211
  6. NALOXEGOL OXALATE [Suspect]
     Active Substance: NALOXEGOL OXALATE
     Indication: Constipation
     Dosage: IF NECESSARY
     Route: 048
     Dates: start: 20230211
  7. ARANESP [Suspect]
     Active Substance: DARBEPOETIN ALFA
     Indication: Anaemia
     Dosage: 1 DOSAGE FORM, QW (300 MICROGRAM PER GRAM); 1 ADMINISTRATION PER WEEK
     Route: 058
     Dates: start: 20230213
  8. MORPHINE SULFATE [Suspect]
     Active Substance: MORPHINE SULFATE
     Indication: Pain
     Dosage: 1 DF, BID
     Route: 048
     Dates: end: 20230218
  9. MORPHINE SULFATE [Suspect]
     Active Substance: MORPHINE SULFATE
     Indication: Pain
     Dosage: 1 TAB SKENAN LP 30 MG EVERY 12 HOURS
     Route: 048
     Dates: start: 20230210, end: 20230218
  10. LEUCOVORIN CALCIUM [Suspect]
     Active Substance: LEUCOVORIN CALCIUM
     Indication: Prophylaxis
     Dosage: 1 DF, Q
     Route: 048
     Dates: start: 20230102
  11. LEUCOVORIN CALCIUM [Suspect]
     Active Substance: LEUCOVORIN CALCIUM
     Indication: Prophylaxis
     Dosage: A CP EVERY MONDAY AND THURSDAY
     Route: 048
     Dates: start: 20230102
  12. ACETAMINOPHEN [Suspect]
     Active Substance: ACETAMINOPHEN
     Indication: Pain
     Dosage: 1 DF, Q6H (1 TABLET Q6H, MAXIMUM 3 TABLETS/D)
     Route: 048
     Dates: start: 20230211
  13. ACETAMINOPHEN [Suspect]
     Active Substance: ACETAMINOPHEN
     Indication: Pain
     Dosage: 1 TABLET EVERY 6 HOURS, MAXIMUM 3 TABLETS/DAY
     Route: 048
     Dates: start: 20230211
  14. METRONIDAZOLE [Suspect]
     Active Substance: METRONIDAZOLE
     Indication: Bacterial infection
     Dosage: 1500 MILLIGRAM, QD500 MG MORNING, NOON AND EVENING
     Route: 048
     Dates: start: 20230209, end: 20230303
  15. METRONIDAZOLE [Suspect]
     Active Substance: METRONIDAZOLE
     Indication: Bacterial infection
     Dosage: 500 MG MORNING, NOON AND EVENING
     Route: 048
     Dates: start: 20230209, end: 20230303
  16. DOXORUBICIN [Suspect]
     Active Substance: DOXORUBICIN
     Indication: Diffuse large B-cell lymphoma
     Dosage: 1 TREATMENT
     Route: 065
     Dates: start: 20221227
  17. PANTOPRAZOLE [Suspect]
     Active Substance: PANTOPRAZOLE
     Indication: Gastritis prophylaxis
     Route: 048
     Dates: start: 20230106
  18. RITUXIMAB [Suspect]
     Active Substance: RITUXIMAB
     Indication: Diffuse large B-cell lymphoma
     Dosage: 1 COURSE, ((MAMMAL/HAMSTER/CHO CELLS))
     Route: 065
     Dates: start: 20221227
  19. CASPOFUNGIN [Suspect]
     Active Substance: CASPOFUNGIN
     Indication: Fungal infection
     Route: 042
     Dates: start: 20230126
  20. CASPOFUNGIN [Suspect]
     Active Substance: CASPOFUNGIN
     Indication: Fungal infection
     Dosage: CASPOFUNGIN ACETATE ((MUSHROOM/GLAREA LOZOYENSIS))
     Route: 042
     Dates: start: 20230126
  21. AMITRIPTYLINE HYDROCHLORIDE [Suspect]
     Active Substance: AMITRIPTYLINE HYDROCHLORIDE
     Indication: Pain
     Dosage: 1/12 MILLILITER PER DAY 35 GTT DROPS, 5 DROP MOR, 10 DROP MIDDAY AND EVEN
     Route: 048
     Dates: start: 20221210
  22. AMITRIPTYLINE HYDROCHLORIDE [Suspect]
     Active Substance: AMITRIPTYLINE HYDROCHLORIDE
     Indication: Pain
     Dosage: 5 DROPS IN THE MORNING AND 10 DROPS AT NOON AND IN THE EVENING
     Route: 048
     Dates: start: 20221210
  23. DAPTOMYCIN [Suspect]
     Active Substance: DAPTOMYCIN
     Indication: Bacterial infection
     Dosage: DOSE DESCRIPTION : 1 G
     Route: 042
     Dates: start: 20230211, end: 20230306
  24. DAPTOMYCIN [Suspect]
     Active Substance: DAPTOMYCIN
     Indication: Bacterial infection
     Route: 042
     Dates: start: 20230211, end: 20230306
  25. CYCLOPHOSPHAMIDE [Suspect]
     Active Substance: CYCLOPHOSPHAMIDE
     Indication: Diffuse large B-cell lymphoma
     Dosage: DOSE DESCRIPTION : 1  COURSE
     Route: 065
     Dates: start: 20221227
  26. CYCLOPHOSPHAMIDE [Suspect]
     Active Substance: CYCLOPHOSPHAMIDE
     Indication: Diffuse large B-cell lymphoma
     Dosage: 1 COURSE
     Route: 065
     Dates: start: 20221227
  27. CIPROFLOXACIN [Suspect]
     Active Substance: CIPROFLOXACIN
     Indication: Bacterial infection
     Route: 065
     Dates: start: 20230203, end: 20230208
  28. BACTRIM [Suspect]
     Active Substance: SULFAMETHOXAZOLE\TRIMETHOPRIM
     Indication: Bacterial infection
     Dosage: 1 TABLET IN THE MORNING (400 MG)
     Route: 048
     Dates: start: 20230106, end: 20230303
  29. BACTRIM [Suspect]
     Active Substance: SULFAMETHOXAZOLE\TRIMETHOPRIM
     Indication: Bacterial infection
     Dosage: 400 MILLIGRAM, QD (1 DF, 1 TAB IN THE MORNING)
     Route: 048
     Dates: start: 20230106, end: 20230303
  30. VINCRISTINE [Suspect]
     Active Substance: VINCRISTINE
     Indication: Diffuse large B-cell lymphoma
     Dosage: 1 TREATMENT; VINCRISTINE SULFATE
     Route: 065
     Dates: start: 20221227
  31. CILASTATIN SODIUM\IMIPENEM [Suspect]
     Active Substance: CILASTATIN SODIUM\IMIPENEM
     Indication: Bacterial infection
     Dosage: 1 INJECTION 800 MILLIGRAM, QD, 500MG/500MG
     Route: 042
     Dates: start: 20230114, end: 20230208
  32. CEFTRIAXONE [Suspect]
     Active Substance: CEFTRIAXONE
     Indication: Bacterial infection
     Dosage: 2 G, BIDQD1G MORNING AND EVENING; CEFTRIAXONE BASE
     Route: 048
     Dates: start: 20230209
  33. CEFTRIAXONE [Suspect]
     Active Substance: CEFTRIAXONE
     Indication: Bacterial infection
     Dosage: 1 G MORNING AND EVENING; CEFTRIAXONE BASE
     Route: 048
     Dates: start: 20230209
  34. ACUPAN [Suspect]
     Active Substance: NEFOPAM HYDROCHLORIDE
     Indication: Pain
     Dosage: ONE AMPOULE EVERY FOUR HOURS IF PAIN
     Route: 048
     Dates: start: 20230106, end: 20230302
  35. ACUPAN [Suspect]
     Active Substance: NEFOPAM HYDROCHLORIDE
     Indication: Pain
     Dosage: ONE AMPOULE EVERY 4 HOURS IF PAIN
     Route: 048
     Dates: start: 20230106, end: 20230302
  36. ALPRAZOLAM [Suspect]
     Active Substance: ALPRAZOLAM
     Indication: Anxiety
     Dosage: 1 TABLET 0.25MG IF ANXIETY
     Route: 048
     Dates: start: 20230106, end: 20230209
  37. LOVENOX [Suspect]
     Active Substance: ENOXAPARIN SODIUM
     Indication: Prophylaxis
     Route: 058
     Dates: start: 20230210
  38. LOVENOX [Suspect]
     Active Substance: ENOXAPARIN SODIUM
     Indication: Prophylaxis
     Route: 058
     Dates: start: 20230210
  39. SKENAN [Suspect]
     Active Substance: MORPHINE SULFATE
     Indication: Pain
     Dosage: 30 MG, BID (1 TAB SKENAN LP30MG EVERY 12 HOURS)
     Route: 048
     Dates: start: 20230210, end: 20230218
  40. CIPROFLOXACIN [Suspect]
     Active Substance: CIPROFLOXACIN
     Indication: Bacterial infection
     Dosage: DOSE DESCRIPTION : UNK
     Route: 065
     Dates: start: 20230203, end: 20230208
  41. DOXORUBICIN [Suspect]
     Active Substance: DOXORUBICIN
     Indication: Diffuse large B-cell lymphoma
     Dosage: DOSE DESCRIPTION : 1 COURSE
     Route: 065
     Dates: start: 20221227
  42. RITUXIMAB [Suspect]
     Active Substance: RITUXIMAB
     Indication: Diffuse large B-cell lymphoma
     Dosage: 1 TREATMENT
     Route: 065
     Dates: start: 20221227

REACTIONS (1)
  - Agranulocytosis [Recovered/Resolved]

NARRATIVE: CASE EVENT DATE: 20230201
